FAERS Safety Report 19115591 (Version 1)
Quarter: 2021Q2

REPORT INFORMATION
  Report Type: Report from Study
  Country: IT (occurrence: IT)
  Receive Date: 20210409
  Receipt Date: 20210409
  Transmission Date: 20210717
  Serious: Yes (Other)
  Sender: FDA-Public Use
  Company Number: IT-TEVA-2021-IT-1898422

PATIENT
  Age: 47 Year
  Sex: Female

DRUGS (7)
  1. CARBOPLATINO TEVA [Suspect]
     Active Substance: CARBOPLATIN
     Indication: BREAST CANCER
     Route: 065
     Dates: start: 20210224
  2. OKI [Concomitant]
     Active Substance: KETOPROFEN LYSINE
     Indication: APHTHOUS ULCER
  3. PACLITAXEL SANDOZ [Suspect]
     Active Substance: PACLITAXEL
     Indication: BREAST CANCER
     Route: 065
     Dates: start: 20210224
  4. CHLORPHENAMINE [Concomitant]
     Active Substance: CHLORPHENIRAMINE MALEATE
     Indication: ANTIALLERGIC THERAPY
  5. ONDANSETRON HYDROCHLORIDE. [Concomitant]
     Active Substance: ONDANSETRON HYDROCHLORIDE
     Indication: VOMITING
  6. DEXAMETHASONE. [Concomitant]
     Active Substance: DEXAMETHASONE
     Indication: ANTIINFLAMMATORY THERAPY
  7. FAMOTIDINE. [Concomitant]
     Active Substance: FAMOTIDINE
     Indication: ANTIALLERGIC THERAPY

REACTIONS (12)
  - Asthenia [Recovering/Resolving]
  - Thrombocytopenia [Recovering/Resolving]
  - Aphthous ulcer [Recovering/Resolving]
  - Middle insomnia [Recovering/Resolving]
  - Muscle spasms [Recovering/Resolving]
  - Constipation [Recovering/Resolving]
  - Agitation [Recovering/Resolving]
  - Dysgeusia [Recovering/Resolving]
  - Alopecia [Recovering/Resolving]
  - Tachycardia [Recovering/Resolving]
  - Paraesthesia [Recovering/Resolving]
  - Dry skin [Recovering/Resolving]

NARRATIVE: CASE EVENT DATE: 20210224
